FAERS Safety Report 7688772-4 (Version None)
Quarter: 2011Q3

REPORT INFORMATION
  Report Type: 
  Country: None (occurrence: None)
  Receive Date: 20110817
  Receipt Date: 20110808
  Transmission Date: 20111222
  Serious: Yes (Other)
  Sender: FDA-Public Use
  Company Number: PHHY2011PL71685

PATIENT
  Sex: Male
  Weight: 73 kg

DRUGS (3)
  1. CEFUROXIME [Suspect]
     Dosage: UNK
     Route: 048
     Dates: start: 20110805, end: 20110807
  2. BIOFUROKSYM [Concomitant]
     Dosage: UNK
     Dates: start: 20110802, end: 20110805
  3. AMOXICILLIN AND CLAVULANATE POTASSIUM [Suspect]
     Dosage: UNK
     Route: 048
     Dates: start: 20110730, end: 20110801

REACTIONS (11)
  - PAIN IN EXTREMITY [None]
  - PRURITUS [None]
  - RASH PAPULAR [None]
  - BLOOD PRESSURE INCREASED [None]
  - OEDEMA PERIPHERAL [None]
  - OEDEMA MUCOSAL [None]
  - RASH [None]
  - COUGH [None]
  - BODY TEMPERATURE INCREASED [None]
  - DRY MOUTH [None]
  - HEART RATE INCREASED [None]
